FAERS Safety Report 8391292-5 (Version None)
Quarter: 2012Q2

REPORT INFORMATION
  Report Type: 
  Country: None (occurrence: None)
  Receive Date: 20120529
  Receipt Date: 20120522
  Transmission Date: 20120825
  Serious: Yes (Death, Hospitalization)
  Sender: FDA-Public Use
  Company Number: US-JNJFOC-20120208654

PATIENT
  Sex: Female
  Weight: 124.29 kg

DRUGS (10)
  1. FERROUS SULFATE TAB [Concomitant]
     Indication: ANAEMIA
     Dosage: 32S (6S)
     Route: 065
     Dates: start: 20120125
  2. INVEGA SUSTENNA [Suspect]
     Route: 030
     Dates: start: 20120210
  3. LOSARTAN POTASSIUM [Concomitant]
     Indication: HYPERTENSION
     Route: 065
     Dates: start: 20120125
  4. LOVAZA [Concomitant]
     Indication: BLOOD TRIGLYCERIDES
     Dosage: ONE CAPSULE
     Route: 065
     Dates: start: 20120125
  5. INVEGA SUSTENNA [Suspect]
     Indication: SCHIZOPHRENIA
     Route: 030
     Dates: start: 20120206
  6. LISINOPRIL [Concomitant]
     Indication: HYPERTENSION
     Route: 048
     Dates: start: 20120125
  7. INVEGA SUSTENNA [Suspect]
     Route: 030
     Dates: start: 20120210
  8. UNKNOWN MEDICATION [Suspect]
     Indication: PRODUCT USED FOR UNKNOWN INDICATION
     Route: 065
  9. HUMALOG [Concomitant]
     Indication: DIABETES MELLITUS
     Route: 065
     Dates: start: 20120125
  10. INVEGA SUSTENNA [Suspect]
     Indication: BIPOLAR DISORDER
     Route: 030
     Dates: start: 20120206

REACTIONS (2)
  - CARDIAC ARREST [None]
  - DRUG ABUSE [None]
